FAERS Safety Report 8781655 (Version 1)
Quarter: 2012Q4

REPORT INFORMATION
  Report Type: 
  Country: GB (occurrence: GB)
  Receive Date: 20120913
  Receipt Date: 20120913
  Transmission Date: 20130627
  Serious: Yes (Disabling)
  Sender: FDA-Public Use
  Company Number: GB-JNJFOC-20120902028

PATIENT
  Age: 70 Year
  Sex: Female
  Weight: 70 kg

DRUGS (1)
  1. PARACETAMOL/CODEINE PHOSPHATE [Suspect]
     Indication: PRODUCT USED FOR UNKNOWN INDICATION
     Route: 065
     Dates: start: 20120824

REACTIONS (3)
  - Syncope [Unknown]
  - Hypotension [Unknown]
  - Nausea [Unknown]
